FAERS Safety Report 8416582-9 (Version None)
Quarter: 2012Q2

REPORT INFORMATION
  Report Type: 
  Country: None (occurrence: None)
  Receive Date: 20120606
  Receipt Date: 20120529
  Transmission Date: 20120825
  Serious: Yes (Hospitalization)
  Sender: FDA-Public Use
  Company Number: IE-ABBOTT-12P-229-0912246-00

PATIENT
  Sex: Female

DRUGS (4)
  1. HUMIRA [Suspect]
  2. HUMIRA [Suspect]
     Route: 058
     Dates: start: 20110509
  3. HUMIRA [Suspect]
     Indication: CROHN'S DISEASE
     Dosage: 160/80/40
     Dates: start: 20110509
  4. OMEPRAZOLE (PRISOLEC) [Concomitant]
     Indication: PRODUCT USED FOR UNKNOWN INDICATION

REACTIONS (4)
  - DECREASED APPETITE [None]
  - INTESTINAL OPERATION [None]
  - MALAISE [None]
  - CROHN'S DISEASE [None]
